FAERS Safety Report 14172026 (Version 1)
Quarter: 2017Q4

REPORT INFORMATION
  Report Type: Report from Study
  Country: US (occurrence: US)
  Receive Date: 20171108
  Receipt Date: 20171108
  Transmission Date: 20180321
  Serious: Yes (Other)
  Sender: FDA-Public Use
  Company Number: US-CIPLA LTD.-2017US19440

PATIENT

DRUGS (5)
  1. AFATINIB [Concomitant]
     Active Substance: AFATINIB
     Indication: OROPHARYNGEAL SQUAMOUS CELL CARCINOMA
     Dosage: 30 MG, PER DAY ON DAY 1-21 OF EACH 21-DAY CYCLE
     Route: 048
  2. CARBOPLATIN. [Suspect]
     Active Substance: CARBOPLATIN
     Indication: OROPHARYNGEAL SQUAMOUS CELL CARCINOMA
     Dosage: AUC 1.5 ADMINISTERED ON DAYS 1 AND 8 OF 21-DAY CYCLES FOR A TOTAL OF 3 CYCLES
     Route: 042
  3. PACLITAXEL. [Suspect]
     Active Substance: PACLITAXEL
     Indication: OROPHARYNGEAL SQUAMOUS CELL CARCINOMA
     Dosage: 80 MG/M2, ON DAYS 1 AND 8 OF EACH 21-DAY CYCLE
     Route: 042
  4. RIBAVIRIN. [Concomitant]
     Active Substance: RIBAVIRIN
     Indication: OROPHARYNGEAL SQUAMOUS CELL CARCINOMA
     Dosage: 1000 MG PER DAY (400 MG IN THE MORNING AND 600 MG IN THE EVENING) ON DAY 1-21 OF EACH 21-DAY CYCLE
     Route: 048
  5. CISPLATIN. [Concomitant]
     Active Substance: CISPLATIN
     Indication: OROPHARYNGEAL SQUAMOUS CELL CARCINOMA
     Dosage: 100 MG/M2 FOR EVERY 3 WEEKS X 3, 7000 CGY
     Route: 065

REACTIONS (4)
  - Hypotension [Unknown]
  - Hypoxia [Unknown]
  - Flushing [Unknown]
  - Chest pain [Unknown]
